FAERS Safety Report 8171557-2 (Version None)
Quarter: 2012Q1

REPORT INFORMATION
  Report Type: 
  Country: None (occurrence: None)
  Receive Date: 20120228
  Receipt Date: 20120224
  Transmission Date: 20120608
  Serious: Yes (Other)
  Sender: FDA-Public Use
  Company Number: US-PFIZER INC-2012049718

PATIENT
  Sex: Female

DRUGS (1)
  1. NEURONTIN [Suspect]
     Indication: NERVE COMPRESSION
     Dosage: UNK
     Dates: start: 20120101

REACTIONS (6)
  - HYPERSENSITIVITY [None]
  - HEADACHE [None]
  - NAUSEA [None]
  - URINE COLOUR ABNORMAL [None]
  - POLLAKIURIA [None]
  - LYMPHADENOPATHY [None]
